FAERS Safety Report 11003270 (Version 1)
Quarter: 2015Q2

REPORT INFORMATION
  Report Type: Spontaneous
  Country: US (occurrence: US)
  Receive Date: 20150409
  Receipt Date: 20150409
  Transmission Date: 20150821
  Serious: Yes (Hospitalization, Other)
  Sender: FDA-Public Use
  Company Number: US-ABBVIE-15K-163-1371758-00

PATIENT
  Age: 62 Year
  Sex: Female
  Weight: 52.21 kg

DRUGS (4)
  1. HUMIRA [Suspect]
     Active Substance: ADALIMUMAB
     Indication: CROHN^S DISEASE
     Route: 065
     Dates: start: 201407, end: 20150331
  2. MULTIPLE VITAMINS [Concomitant]
     Active Substance: VITAMINS
     Indication: VITAMIN SUPPLEMENTATION
  3. MESALAMINE. [Concomitant]
     Active Substance: MESALAMINE
     Indication: CROHN^S DISEASE
  4. VITAMIN C [Concomitant]
     Active Substance: ASCORBIC ACID
     Indication: VITAMIN SUPPLEMENTATION

REACTIONS (9)
  - Road traffic accident [Recovered/Resolved]
  - Smear cervix abnormal [Not Recovered/Not Resolved]
  - Hand fracture [Not Recovered/Not Resolved]
  - Skull fracture [Recovering/Resolving]
  - Facial bones fracture [Recovering/Resolving]
  - Loss of consciousness [Recovered/Resolved]
  - Concussion [Recovering/Resolving]
  - Lower limb fracture [Not Recovered/Not Resolved]
  - Scapula fracture [Not Recovered/Not Resolved]

NARRATIVE: CASE EVENT DATE: 201502
